FAERS Safety Report 5088048-8 (Version None)
Quarter: 2006Q3

REPORT INFORMATION
  Report Type: 
  Country: None (occurrence: None)
  Receive Date: 20060821
  Receipt Date: 20060712
  Transmission Date: 20061208
  Serious: Yes (Hospitalization, Other)
  Sender: FDA-Public Use
  Company Number: 2005154778

PATIENT
  Age: 56 Year
  Sex: Male

DRUGS (2)
  1. BEXTRA [Suspect]
     Indication: ANALGESIC EFFECT
     Dosage: ORAL
     Route: 048
  2. CELEBREX [Suspect]
     Dates: start: 20040517

REACTIONS (5)
  - CORONARY ARTERY DISEASE [None]
  - CORONARY ARTERY STENOSIS [None]
  - DYSPNOEA [None]
  - HYPOKINESIA [None]
  - MYOCARDIAL INFARCTION [None]
